FAERS Safety Report 10133233 (Version 2)
Quarter: 2014Q2

REPORT INFORMATION
  Report Type: Spontaneous
  Country: US (occurrence: US)
  Receive Date: 20140428
  Receipt Date: 20140609
  Transmission Date: 20141212
  Serious: Yes (Other)
  Sender: FDA-Public Use
  Company Number: US-PFIZER INC-2014115084

PATIENT
  Age: 70 Year
  Sex: Female
  Weight: 51.25 kg

DRUGS (3)
  1. PREMARIN [Suspect]
     Dosage: 0.3 MG, UNK
     Route: 048
  2. PREMARIN [Suspect]
     Dosage: UNK
     Route: 067
  3. NORVASC [Suspect]
     Dosage: UNK

REACTIONS (1)
  - Bladder prolapse [Unknown]
